FAERS Safety Report 13737209 (Version 1)
Quarter: 2017Q3

REPORT INFORMATION
  Report Type: Spontaneous
  Country: US (occurrence: US)
  Receive Date: 20170710
  Receipt Date: 20170710
  Transmission Date: 20171127
  Serious: No
  Sender: FDA-Public Use
  Company Number: US-SAOL THERAPEUTICS-2016SAO00152

PATIENT
  Age: 10 Year
  Sex: Female

DRUGS (3)
  1. BACLOFEN. [Suspect]
     Active Substance: BACLOFEN
     Indication: MUSCLE SPASTICITY
     Dosage: 130 ?G, \DAY
     Route: 037
     Dates: end: 20160628
  2. BACLOFEN. [Suspect]
     Active Substance: BACLOFEN
     Dosage: 130 ?G, \DAY
     Dates: start: 20160629
  3. BACLOFEN. [Suspect]
     Active Substance: BACLOFEN
     Indication: SPINAL CORD INJURY
     Dosage: 96 ?G, \DAY
     Dates: start: 20160628, end: 20160629

REACTIONS (4)
  - Overdose [Recovered/Resolved]
  - Device damage [Recovered/Resolved]
  - Weight increased [Unknown]
  - Delayed recovery from anaesthesia [Recovered/Resolved]

NARRATIVE: CASE EVENT DATE: 20160628
